APPROVED DRUG PRODUCT: CHLOROFAIR
Active Ingredient: CHLORAMPHENICOL
Strength: 0.5%
Dosage Form/Route: SOLUTION/DROPS;OPHTHALMIC
Application: A062437 | Product #001
Applicant: PHARMAFAIR INC
Approved: Apr 14, 1983 | RLD: No | RS: No | Type: DISCN